FAERS Safety Report 4558337-1 (Version None)
Quarter: 2005Q1

REPORT INFORMATION
  Report Type: 
  Country: None (occurrence: None)
  Receive Date: 20050121
  Receipt Date: 20040420
  Transmission Date: 20050727
  Serious: No
  Sender: FDA-Public Use
  Company Number: US-BRISTOL-MYERS SQUIBB COMPANY-12566337

PATIENT
  Age: 11 Year
  Sex: Male
  Weight: 41 kg

DRUGS (10)
  1. CEFZIL [Suspect]
     Indication: PHARYNGITIS STREPTOCOCCAL
     Route: 048
     Dates: start: 20040408, end: 20040415
  2. ENTEX LA [Suspect]
     Indication: SINUS CONGESTION
     Dates: start: 20040416, end: 20040419
  3. PROZAC [Concomitant]
  4. STRATTERA [Concomitant]
  5. SEROQUEL [Concomitant]
  6. ACIPHEX [Concomitant]
  7. CLONIDINE [Concomitant]
  8. MULTI-VITAMIN [Concomitant]
  9. DOCUSATE SODIUM [Concomitant]
  10. FIBERCHOICE [Concomitant]

REACTIONS (1)
  - RASH [None]
